FAERS Safety Report 20855575 (Version 1)
Quarter: 2022Q2

REPORT INFORMATION
  Report Type: Report from Study
  Country: TR (occurrence: TR)
  Receive Date: 20220520
  Receipt Date: 20220520
  Transmission Date: 20220721
  Serious: Yes (Life-Threatening, Other)
  Sender: FDA-Public Use
  Company Number: TR-BAYER-2019-106667

PATIENT
  Age: 71 Year
  Sex: Male
  Weight: 66 kg

DRUGS (38)
  1. COPANLISIB [Suspect]
     Active Substance: COPANLISIB
     Indication: Non-Hodgkin^s lymphoma recurrent
     Dosage: 60 MG
     Route: 042
     Dates: start: 20190318, end: 20190318
  2. COPANLISIB [Suspect]
     Active Substance: COPANLISIB
     Indication: Non-Hodgkin^s lymphoma recurrent
     Dosage: 60 MG
     Route: 042
     Dates: start: 20190325, end: 20190325
  3. COPANLISIB [Suspect]
     Active Substance: COPANLISIB
     Indication: Non-Hodgkin^s lymphoma recurrent
     Dosage: 60 MG
     Route: 042
     Dates: start: 20190401, end: 20190401
  4. COPANLISIB [Suspect]
     Active Substance: COPANLISIB
     Indication: Non-Hodgkin^s lymphoma recurrent
     Dosage: 60 MG
     Route: 042
     Dates: start: 20190416, end: 20190416
  5. COPANLISIB [Suspect]
     Active Substance: COPANLISIB
     Indication: Non-Hodgkin^s lymphoma recurrent
     Dosage: 60 MG
     Route: 042
     Dates: start: 20190429, end: 20190429
  6. COPANLISIB [Suspect]
     Active Substance: COPANLISIB
     Indication: Non-Hodgkin^s lymphoma recurrent
     Dosage: 60 MG
     Route: 042
     Dates: start: 20190514, end: 20190514
  7. COPANLISIB [Suspect]
     Active Substance: COPANLISIB
     Indication: Non-Hodgkin^s lymphoma recurrent
     Dosage: 60 MG
     Route: 042
     Dates: start: 20190520, end: 20190520
  8. COPANLISIB [Suspect]
     Active Substance: COPANLISIB
     Indication: Non-Hodgkin^s lymphoma recurrent
     Dosage: 45 MG
     Route: 042
     Dates: start: 20190618, end: 20190618
  9. COPANLISIB [Suspect]
     Active Substance: COPANLISIB
     Indication: Non-Hodgkin^s lymphoma recurrent
     Dosage: 45 MG
     Route: 042
     Dates: start: 20190625, end: 20190625
  10. COPANLISIB [Suspect]
     Active Substance: COPANLISIB
     Indication: Non-Hodgkin^s lymphoma recurrent
     Dosage: 45 MG
     Route: 042
     Dates: start: 20190703, end: 20190703
  11. COPANLISIB [Suspect]
     Active Substance: COPANLISIB
     Indication: Non-Hodgkin^s lymphoma recurrent
     Dosage: 45 MG
     Route: 042
     Dates: start: 20190717, end: 20190717
  12. COPANLISIB [Suspect]
     Active Substance: COPANLISIB
     Indication: Non-Hodgkin^s lymphoma recurrent
     Dosage: 45 MG
     Route: 042
     Dates: start: 20190723, end: 20190723
  13. COPANLISIB [Suspect]
     Active Substance: COPANLISIB
     Indication: Non-Hodgkin^s lymphoma recurrent
     Dosage: 45 MG
     Route: 042
     Dates: start: 20190820, end: 20190820
  14. RITUXIMAB [Suspect]
     Active Substance: RITUXIMAB
     Indication: Non-Hodgkin^s lymphoma recurrent
     Dosage: 375 MG/M2
     Route: 042
     Dates: start: 20190318, end: 20190318
  15. RITUXIMAB [Suspect]
     Active Substance: RITUXIMAB
     Indication: Non-Hodgkin^s lymphoma recurrent
     Dosage: 375 MG/M2
     Route: 042
     Dates: start: 20190416, end: 20190416
  16. RITUXIMAB [Suspect]
     Active Substance: RITUXIMAB
     Indication: Non-Hodgkin^s lymphoma recurrent
     Dosage: 375 MG/M2
     Route: 042
     Dates: start: 20190514, end: 20190514
  17. RITUXIMAB [Suspect]
     Active Substance: RITUXIMAB
     Indication: Non-Hodgkin^s lymphoma recurrent
     Dosage: 375 MG/M2
     Route: 042
     Dates: start: 20190618, end: 20190618
  18. RITUXIMAB [Suspect]
     Active Substance: RITUXIMAB
     Indication: Non-Hodgkin^s lymphoma recurrent
     Dosage: 375 MG/M2
     Route: 042
     Dates: start: 20190717, end: 20190717
  19. RITUXIMAB [Suspect]
     Active Substance: RITUXIMAB
     Indication: Non-Hodgkin^s lymphoma recurrent
     Dosage: 375 MG/M2
     Route: 042
     Dates: start: 20190820, end: 20190820
  20. BENDAMUSTINE [Suspect]
     Active Substance: BENDAMUSTINE
     Indication: Non-Hodgkin^s lymphoma recurrent
     Dosage: 90 MG/M2
     Route: 042
     Dates: start: 20190318, end: 20190318
  21. BENDAMUSTINE [Suspect]
     Active Substance: BENDAMUSTINE
     Indication: Non-Hodgkin^s lymphoma recurrent
     Dosage: 90 MG/M2
     Route: 042
     Dates: start: 20190319, end: 20190319
  22. BENDAMUSTINE [Suspect]
     Active Substance: BENDAMUSTINE
     Indication: Non-Hodgkin^s lymphoma recurrent
     Dosage: 90 MG/M2
     Route: 042
     Dates: start: 20190416, end: 20190416
  23. BENDAMUSTINE [Suspect]
     Active Substance: BENDAMUSTINE
     Indication: Non-Hodgkin^s lymphoma recurrent
     Dosage: 90 MG/M2
     Route: 042
     Dates: start: 20190417, end: 20190417
  24. BENDAMUSTINE [Suspect]
     Active Substance: BENDAMUSTINE
     Indication: Non-Hodgkin^s lymphoma recurrent
     Dosage: 90 MG/M2
     Route: 042
     Dates: start: 20190514, end: 20190514
  25. BENDAMUSTINE [Suspect]
     Active Substance: BENDAMUSTINE
     Indication: Non-Hodgkin^s lymphoma recurrent
     Dosage: 90 MG/M2
     Route: 042
     Dates: start: 20190515, end: 20190515
  26. BENDAMUSTINE [Suspect]
     Active Substance: BENDAMUSTINE
     Indication: Non-Hodgkin^s lymphoma recurrent
     Dosage: 90 MG/M2
     Route: 042
     Dates: start: 20190618, end: 20190618
  27. BENDAMUSTINE [Suspect]
     Active Substance: BENDAMUSTINE
     Indication: Non-Hodgkin^s lymphoma recurrent
     Dosage: 90 MG/M2
     Route: 042
     Dates: start: 20190619, end: 20190619
  28. BENDAMUSTINE [Suspect]
     Active Substance: BENDAMUSTINE
     Indication: Non-Hodgkin^s lymphoma recurrent
     Dosage: 90 MG/M2
     Route: 042
     Dates: start: 20190717, end: 20190717
  29. BENDAMUSTINE [Suspect]
     Active Substance: BENDAMUSTINE
     Indication: Non-Hodgkin^s lymphoma recurrent
     Dosage: 90 MG/M2
     Route: 042
     Dates: start: 20190718, end: 20190718
  30. BENDAMUSTINE [Suspect]
     Active Substance: BENDAMUSTINE
     Indication: Non-Hodgkin^s lymphoma recurrent
     Dosage: 90 MG/M2
     Route: 042
     Dates: start: 20190820, end: 20190820
  31. BENDAMUSTINE [Suspect]
     Active Substance: BENDAMUSTINE
     Indication: Non-Hodgkin^s lymphoma recurrent
     Dosage: 90 MG/M2
     Route: 042
     Dates: start: 20190821, end: 20190821
  32. SYSTANE (HYPROMELLOSE 2910 (4000 MPA.S)) [Concomitant]
     Active Substance: HYPROMELLOSE 2910 (4000 MPA.S)
     Indication: Dry eye
     Dosage: 1 GTT, TID
     Route: 046
     Dates: start: 2012
  33. CYCLOSPORINE [Concomitant]
     Active Substance: CYCLOSPORINE
     Indication: Dry eye
     Dosage: 1 GTT, TID
     Route: 046
     Dates: start: 2012
  34. TAMSULOSIN [Concomitant]
     Active Substance: TAMSULOSIN
     Indication: Prostatic obstruction
     Dosage: 0.4 MG, QD
     Route: 048
     Dates: start: 2012
  35. HUMAN RED BLOOD CELL [Concomitant]
     Active Substance: HUMAN RED BLOOD CELL
     Indication: Prophylaxis
     Dosage: 1 U, QD
     Route: 042
     Dates: start: 20190529, end: 20190529
  36. HUMAN RED BLOOD CELL [Concomitant]
     Active Substance: HUMAN RED BLOOD CELL
     Indication: Prophylaxis
     Dosage: 1 U, QD
     Route: 042
     Dates: start: 20190612, end: 20190612
  37. HUMAN RED BLOOD CELL [Concomitant]
     Active Substance: HUMAN RED BLOOD CELL
     Indication: Prophylaxis
     Dosage: 1 U, QD
     Route: 042
     Dates: start: 20190723, end: 20190723
  38. VALTREX [Concomitant]
     Active Substance: VALACYCLOVIR HYDROCHLORIDE
     Indication: Herpes zoster
     Dosage: 1000 MG, TID
     Route: 048
     Dates: start: 20190902

REACTIONS (5)
  - Diarrhoea [Recovered/Resolved]
  - Enterocolitis infectious [Recovered/Resolved]
  - Neutrophil count decreased [Recovered/Resolved]
  - Lymphocyte count decreased [Recovering/Resolving]
  - Neutrophil count decreased [Recovered/Resolved]

NARRATIVE: CASE EVENT DATE: 20190521
